FAERS Safety Report 23027455 (Version 1)
Quarter: 2023Q4

REPORT INFORMATION
  Report Type: Spontaneous
  Country: FR (occurrence: FR)
  Receive Date: 20231004
  Receipt Date: 20231004
  Transmission Date: 20240109
  Serious: Yes (Hospitalization)
  Sender: FDA-Public Use
  Company Number: None

PATIENT
  Age: 70 Year
  Sex: Female
  Weight: 70 kg

DRUGS (3)
  1. BISOPROLOL [Suspect]
     Active Substance: BISOPROLOL\BISOPROLOL FUMARATE
     Indication: Type 2 diabetes mellitus
     Dosage: 2.5 MILLIGRAM, QD
     Route: 048
     Dates: end: 20230529
  2. FUROSEMIDE [Suspect]
     Active Substance: FUROSEMIDE
     Indication: Hypertension
     Dosage: 40 MILLIGRAM, QD
     Route: 048
     Dates: start: 20230529
  3. ALDACTONE [Suspect]
     Active Substance: SPIRONOLACTONE
     Indication: Hypertension
     Dosage: 25 MILLIGRAM, QD
     Route: 048
     Dates: start: 20230529

REACTIONS (3)
  - Sinus bradycardia [Recovered/Resolved]
  - Acute kidney injury [Recovered/Resolved]
  - Accidental overdose [Recovered/Resolved]

NARRATIVE: CASE EVENT DATE: 20230529
